FAERS Safety Report 11060706 (Version 1)
Quarter: 2015Q2

REPORT INFORMATION
  Report Type: Spontaneous
  Country: US (occurrence: US)
  Receive Date: 20150423
  Receipt Date: 20150423
  Transmission Date: 20150821
  Serious: Yes (Death, Hospitalization)
  Sender: FDA-Public Use
  Company Number: US-INTERMUNE, INC.-201504IM013784

PATIENT
  Age: 63 Year
  Sex: Female

DRUGS (7)
  1. ESBRIET [Suspect]
     Active Substance: PIRFENIDONE
     Dosage: 801 MG
     Route: 048
  2. ANTI-HYPERTENSIVE DRUG [Concomitant]
     Indication: HYPERTENSION
  3. ESBRIET [Suspect]
     Active Substance: PIRFENIDONE
     Dosage: 534 MG
     Route: 048
  4. CELLCEPT [Suspect]
     Active Substance: MYCOPHENOLATE MOFETIL\MYCOPHENOLATE MOFETIL HYDROCHLORIDE
     Indication: LUNG TRANSPLANT
  5. MUCINEX [Concomitant]
     Active Substance: GUAIFENESIN
  6. ESBRIET [Suspect]
     Active Substance: PIRFENIDONE
     Indication: DISEASE PROGRESSION
     Route: 048
  7. LASIX [Concomitant]
     Active Substance: FUROSEMIDE

REACTIONS (7)
  - Nausea [Unknown]
  - Corneal abrasion [Unknown]
  - Pneumonia [Unknown]
  - Lung transplant rejection [Fatal]
  - Idiopathic pulmonary fibrosis [Unknown]
  - Influenza [Unknown]
  - Pancreatitis [Unknown]

NARRATIVE: CASE EVENT DATE: 20130716
